FAERS Safety Report 9036294 (Version 1)
Quarter: 2013Q1

REPORT INFORMATION
  Report Type: Spontaneous
  Country: US (occurrence: None)
  Receive Date: 20130117
  Receipt Date: 20130117
  Transmission Date: 20140127
  Serious: Yes (Other)
  Sender: FDA-Public Use
  Company Number: None

PATIENT
  Age: 49 Year
  Sex: Female
  Weight: 93.44 kg

DRUGS (2)
  1. MONTELUKAST [Suspect]
     Indication: ASTHMA
     Route: 048
     Dates: start: 20121012, end: 20121112
  2. MONTELUKAST [Suspect]
     Indication: SEASONAL ALLERGY
     Route: 048
     Dates: start: 20121012, end: 20121112

REACTIONS (3)
  - Asthma [None]
  - Urticaria [None]
  - Product substitution issue [None]
